FAERS Safety Report 17757140 (Version 1)
Quarter: 2020Q2

REPORT INFORMATION
  Report Type: Spontaneous
  Country: CN (occurrence: CN)
  Receive Date: 20200507
  Receipt Date: 20200507
  Transmission Date: 20200714
  Serious: Yes (Other)
  Sender: FDA-Public Use
  Company Number: CN-ACCORD-180526

PATIENT
  Age: 54 Year
  Sex: Male

DRUGS (2)
  1. PEMETREXED. [Suspect]
     Active Substance: PEMETREXED
     Indication: LUNG NEOPLASM MALIGNANT
     Dosage: ON DAY 1 EVERY 3 WEEKS FOR 2 CYCLES
  2. CISPLATIN. [Suspect]
     Active Substance: CISPLATIN
     Indication: LUNG NEOPLASM MALIGNANT
     Dosage: ON DAY 1 EVERY 3 WEEKS FOR 2 CYCLES

REACTIONS (5)
  - Oesophageal injury [Unknown]
  - Cutaneous symptom [Unknown]
  - Bone marrow failure [Unknown]
  - Gastrointestinal toxicity [Unknown]
  - Disease progression [Unknown]
